FAERS Safety Report 9554013 (Version 3)
Quarter: 2013Q4

REPORT INFORMATION
  Report Type: Spontaneous
  Country: JP (occurrence: JP)
  Receive Date: 20130925
  Receipt Date: 20131028
  Transmission Date: 20140711
  Serious: Yes (Hospitalization)
  Sender: FDA-Public Use
  Company Number: JP-SANOFI-AVENTIS-2013SA093901

PATIENT
  Age: 64 Year
  Sex: Male

DRUGS (2)
  1. PLAVIX [Suspect]
     Indication: ANGINA UNSTABLE
     Route: 048
     Dates: start: 20130513, end: 20130531
  2. PLAVIX [Suspect]
     Indication: ANGINA UNSTABLE
     Route: 048
     Dates: start: 20130615

REACTIONS (6)
  - Haemobilia [Recovered/Resolved]
  - Abdominal pain upper [Recovered/Resolved]
  - Vomiting [Recovered/Resolved]
  - Cholangitis [Recovered/Resolved]
  - Hepatic enzyme increased [Recovered/Resolved]
  - Anaemia [Recovered/Resolved]
